FAERS Safety Report 10085775 (Version 1)
Quarter: 2014Q2

REPORT INFORMATION
  Report Type: Spontaneous
  Country: IN (occurrence: None)
  Receive Date: 20140416
  Receipt Date: 20140416
  Transmission Date: 20141212
  Serious: Yes (Hospitalization)
  Sender: FDA-Public Use
  Company Number: IPC201404-000162

PATIENT
  Age: 53 Year
  Sex: Male

DRUGS (5)
  1. TRAMADOL [Suspect]
  2. DICLOFENAC [Suspect]
  3. ONDANSETRON [Suspect]
  4. ACETAMINOPHEN [Suspect]
     Indication: PANCREATITIS CHRONIC
  5. NORMAL SALINE [Concomitant]

REACTIONS (5)
  - Mouth ulceration [None]
  - Drug eruption [None]
  - Blister [None]
  - Toxic epidermal necrolysis [None]
  - Stevens-Johnson syndrome [None]
